FAERS Safety Report 10235437 (Version 4)
Quarter: 2014Q3

REPORT INFORMATION
  Report Type: Report from Study
  Country: US (occurrence: US)
  Receive Date: 20140613
  Receipt Date: 20140814
  Transmission Date: 20150326
  Serious: Yes (Other)
  Sender: FDA-Public Use
  Company Number: US-SA-2014SA064193

PATIENT
  Age: 67 Year
  Sex: Male

DRUGS (8)
  1. WELCHOL [Concomitant]
     Active Substance: COLESEVELAM HYDROCHLORIDE
     Indication: BLOOD CHOLESTEROL
     Dosage: 625 MG, 6 TABLETS
     Dates: start: 201402
  2. KYNAMRO [Suspect]
     Active Substance: MIPOMERSEN SODIUM
     Indication: TYPE IIA HYPERLIPIDAEMIA
     Route: 058
     Dates: start: 20140507, end: 20140702
  3. ZOCOR [Concomitant]
     Active Substance: SIMVASTATIN
  4. CLONIDINE. [Concomitant]
     Active Substance: CLONIDINE
     Indication: HYPERTENSION
  5. LIPITOR [Concomitant]
     Active Substance: ATORVASTATIN CALCIUM
  6. CRESTOR [Concomitant]
     Active Substance: ROSUVASTATIN CALCIUM
  7. ZETIA [Concomitant]
     Active Substance: EZETIMIBE
  8. YEAST [Concomitant]
     Active Substance: YEAST

REACTIONS (23)
  - Burning sensation [Not Recovered/Not Resolved]
  - Fatigue [Not Recovered/Not Resolved]
  - Unevaluable event [Not Recovered/Not Resolved]
  - Epistaxis [Not Recovered/Not Resolved]
  - Sneezing [Not Recovered/Not Resolved]
  - Oropharyngeal pain [Not Recovered/Not Resolved]
  - Dyspepsia [Unknown]
  - Injection site bruising [Not Recovered/Not Resolved]
  - Pyrexia [Not Recovered/Not Resolved]
  - Insomnia [Unknown]
  - Muscle spasms [Not Recovered/Not Resolved]
  - Anger [Not Recovered/Not Resolved]
  - Arthralgia [Not Recovered/Not Resolved]
  - Headache [Not Recovered/Not Resolved]
  - Muscle tightness [Unknown]
  - Hypotension [Not Recovered/Not Resolved]
  - Injection site pain [Recovered/Resolved]
  - Rhinorrhoea [Not Recovered/Not Resolved]
  - Feeling cold [Not Recovered/Not Resolved]
  - Influenza like illness [Not Recovered/Not Resolved]
  - Muscle spasms [Not Recovered/Not Resolved]
  - Ear haemorrhage [Not Recovered/Not Resolved]
  - Dry mouth [Not Recovered/Not Resolved]

NARRATIVE: CASE EVENT DATE: 2014
